FAERS Safety Report 5618277-3 (Version None)
Quarter: 2008Q1

REPORT INFORMATION
  Report Type: 
  Country: None (occurrence: None)
  Receive Date: 20080206
  Receipt Date: 20080206
  Transmission Date: 20080703
  Serious: No
  Sender: FDA-Public Use
  Company Number: None

PATIENT
  Age: 57 Year
  Weight: 88.4514 kg

DRUGS (2)
  1. CIALIS [Suspect]
     Dosage: 20MG  1  PO
     Route: 048
  2. LEVITRA [Suspect]
     Dosage: 20MG  1  PO
     Route: 048

REACTIONS (1)
  - SUDDEN HEARING LOSS [None]
